FAERS Safety Report 25178168 (Version 4)
Quarter: 2025Q2

REPORT INFORMATION
  Report Type: Spontaneous
  Country: CN (occurrence: CN)
  Receive Date: 20250409
  Receipt Date: 20250418
  Transmission Date: 20250716
  Serious: Yes (Death, Hospitalization, Other)
  Sender: ASTELLAS
  Company Number: CN-ASTELLAS-2025-AER-019836

PATIENT
  Age: 61 Year
  Sex: Male
  Weight: 69 kg

DRUGS (3)
  1. PADCEV [Suspect]
     Active Substance: ENFORTUMAB VEDOTIN-EJFV
     Indication: Bladder cancer
     Route: 042
     Dates: start: 20250324
  2. PADCEV [Suspect]
     Active Substance: ENFORTUMAB VEDOTIN-EJFV
     Route: 042
     Dates: start: 20250331
  3. TORIPALIMAB [Concomitant]
     Active Substance: TORIPALIMAB
     Indication: Product used for unknown indication
     Route: 065

REACTIONS (11)
  - Death [Fatal]
  - Dermatitis bullous [Unknown]
  - Rash [Unknown]
  - Toxic epidermal necrolysis [Unknown]
  - Hyperpyrexia [Unknown]
  - Stevens-Johnson syndrome [Unknown]
  - Heart rate increased [Not Recovered/Not Resolved]
  - Labile blood pressure [Not Recovered/Not Resolved]
  - Metabolic acidosis [Not Recovered/Not Resolved]
  - Atrial flutter [Not Recovered/Not Resolved]
  - Dehydration [Unknown]

NARRATIVE: CASE EVENT DATE: 20250101
